FAERS Safety Report 6539110-1 (Version None)
Quarter: 2010Q1

REPORT INFORMATION
  Report Type: 
  Country: None (occurrence: None)
  Receive Date: 20100115
  Receipt Date: 20100106
  Transmission Date: 20100710
  Serious: Yes (Other)
  Sender: FDA-Public Use
  Company Number: FR-JNJFOC-20091203402

PATIENT
  Age: 65 Year
  Sex: Male

DRUGS (3)
  1. REMINYL [Suspect]
     Indication: DEMENTIA ALZHEIMER'S TYPE
     Route: 048
  2. REMINYL LP [Suspect]
     Indication: DEMENTIA ALZHEIMER'S TYPE
     Route: 048
  3. REMINYL LP [Suspect]
     Route: 048

REACTIONS (3)
  - DRUG DISPENSING ERROR [None]
  - INCORRECT DRUG DOSAGE FORM ADMINISTERED [None]
  - SOMNOLENCE [None]
